FAERS Safety Report 7875648-2 (Version None)
Quarter: 2011Q4

REPORT INFORMATION
  Report Type: 
  Country: None (occurrence: None)
  Receive Date: 20111031
  Receipt Date: 20060710
  Transmission Date: 20120403
  Serious: No
  Sender: FDA-Public Use
  Company Number: PHHY2006BR04870

PATIENT
  Age: 57 Year
  Sex: Female

DRUGS (1)
  1. ZELMAC [Suspect]

REACTIONS (1)
  - INTESTINAL OBSTRUCTION [None]
